FAERS Safety Report 9086985 (Version 1)
Quarter: 2013Q1

REPORT INFORMATION
  Report Type: Spontaneous
  Country: GB (occurrence: IN)
  Receive Date: 20130131
  Receipt Date: 20130131
  Transmission Date: 20140127
  Serious: Yes (Life-Threatening, Hospitalization)
  Sender: FDA-Public Use
  Company Number: GB-PFIZER INC-2013033205

PATIENT
  Age: 62 Year
  Sex: Female

DRUGS (1)
  1. VFEND [Suspect]
     Indication: EYE INFECTION FUNGAL

REACTIONS (4)
  - Swelling [Unknown]
  - Anaemia [Unknown]
  - Dyspnoea [Unknown]
  - Somnolence [Unknown]
